FAERS Safety Report 24603170 (Version 2)
Quarter: 2024Q4

REPORT INFORMATION
  Report Type: Spontaneous
  Country: SA (occurrence: SA)
  Receive Date: 20241111
  Receipt Date: 20241125
  Transmission Date: 20250115
  Serious: Yes (Death)
  Sender: TEVA
  Company Number: SA-TEVA-VS-3261985

PATIENT
  Age: 58 Year
  Sex: Male

DRUGS (3)
  1. OXALIPLATIN [Suspect]
     Active Substance: OXALIPLATIN
     Indication: Gallbladder adenocarcinoma
     Dosage: AS PART OF FOLFOX REGIMEN
     Route: 065
  2. FLUOROURACIL [Suspect]
     Active Substance: FLUOROURACIL
     Indication: Gallbladder adenocarcinoma
     Dosage: AS PART OF FOLFOX REGIMEN
     Route: 065
  3. LEUCOVORIN [Suspect]
     Active Substance: LEUCOVORIN\LEUCOVORIN CALCIUM
     Indication: Gallbladder adenocarcinoma
     Dosage: AS PART OF FOLFOX REGIMEN
     Route: 065

REACTIONS (1)
  - Drug ineffective [Fatal]
